FAERS Safety Report 12765992 (Version 1)
Quarter: 2016Q3

REPORT INFORMATION
  Report Type: Spontaneous
  Country: US (occurrence: US)
  Receive Date: 20160915
  Receipt Date: 20160915
  Transmission Date: 20161109
  Serious: No
  Sender: FDA-Public Use
  Company Number: None

PATIENT
  Age: 58 Year
  Sex: Female

DRUGS (1)
  1. IMATINIB 100 MG SUN PHARMACEUTICALS [Suspect]
     Active Substance: IMATINIB
     Indication: CHRONIC MYELOID LEUKAEMIA
     Route: 048
     Dates: start: 20160618

REACTIONS (6)
  - Oedema peripheral [None]
  - Vision blurred [None]
  - White blood cell count increased [None]
  - Hyperglycaemia [None]
  - Gout [None]
  - Weight increased [None]

NARRATIVE: CASE EVENT DATE: 201607
